FAERS Safety Report 20861196 (Version 1)
Quarter: 2022Q2

REPORT INFORMATION
  Report Type: Spontaneous
  Country: US (occurrence: None)
  Receive Date: 20220520
  Receipt Date: 20220520
  Transmission Date: 20220721
  Serious: Yes (unspecified)
  Sender: FDA-Public Use
  Company Number: None

PATIENT
  Age: 14 Year
  Sex: Female
  Weight: 58.6 kg

DRUGS (1)
  1. SEMGLEE (INSULIN GLARGINE-YFGN) [Suspect]
     Active Substance: INSULIN GLARGINE-YFGN
     Indication: Type 1 diabetes mellitus
     Dosage: FREQUENCY : DAILY;?
     Route: 058
     Dates: start: 20220519, end: 20220520

REACTIONS (7)
  - Drug hypersensitivity [None]
  - Rash pruritic [None]
  - Throat irritation [None]
  - Nausea [None]
  - Headache [None]
  - Therapeutic product effect incomplete [None]
  - Anaphylactic reaction [None]

NARRATIVE: CASE EVENT DATE: 20220520
